FAERS Safety Report 8337401-5 (Version None)
Quarter: 2012Q2

REPORT INFORMATION
  Report Type: 
  Country: None (occurrence: None)
  Receive Date: 20120504
  Receipt Date: 20120424
  Transmission Date: 20120825
  Serious: Yes (Other)
  Sender: FDA-Public Use
  Company Number: IT-JNJFOC-20110412183

PATIENT

DRUGS (3)
  1. DARUNAVIR HYDRATE [Suspect]
     Indication: FOETAL EXPOSURE DURING PREGNANCY
     Route: 064
  2. RITONAVIR [Concomitant]
     Indication: FOETAL EXPOSURE DURING PREGNANCY
     Route: 064
  3. EMTRICITABINE AND TENOFOVIR DISOPROXIL FUMARATE [Concomitant]
     Indication: FOETAL EXPOSURE DURING PREGNANCY
     Route: 064

REACTIONS (2)
  - PREMATURE BABY [None]
  - MATERNAL DRUGS AFFECTING FOETUS [None]
